FAERS Safety Report 5357106-2 (Version None)
Quarter: 2007Q2

REPORT INFORMATION
  Report Type: 
  Country: None (occurrence: None)
  Receive Date: 20070614
  Receipt Date: 20070604
  Transmission Date: 20071010
  Serious: Yes (Other)
  Sender: FDA-Public Use
  Company Number: HQWYE504006JUN07

PATIENT
  Age: 65 Year
  Sex: Male

DRUGS (2)
  1. EFFEXOR [Suspect]
     Indication: MAJOR DEPRESSION
     Dosage: UNKNOWN
  2. LITHIUM CARBONATE [Suspect]
     Indication: BIPOLAR DISORDER
     Dosage: UNKNOWN

REACTIONS (5)
  - ABNORMAL BEHAVIOUR [None]
  - ALTERED STATE OF CONSCIOUSNESS [None]
  - AUTONOMIC NEUROPATHY [None]
  - NEUROMYOPATHY [None]
  - SEROTONIN SYNDROME [None]
